FAERS Safety Report 8077403-X (Version None)
Quarter: 2012Q1

REPORT INFORMATION
  Report Type: 
  Country: None (occurrence: None)
  Receive Date: 20120127
  Receipt Date: 20120123
  Transmission Date: 20120608
  Serious: Yes (Other)
  Sender: FDA-Public Use
  Company Number: BR-ELI_LILLY_AND_COMPANY-BR201201006772

PATIENT
  Sex: Male

DRUGS (2)
  1. METFORMIN HCL [Concomitant]
     Indication: TYPE 2 DIABETES MELLITUS
     Dosage: 850 MG, QD
     Route: 048
  2. HUMULIN N [Suspect]
     Dosage: UNK UNK, TID
     Route: 058
     Dates: start: 20110501

REACTIONS (3)
  - SYNCOPE [None]
  - INCORRECT DOSE ADMINISTERED [None]
  - HYPOGLYCAEMIA [None]
